FAERS Safety Report 6689956-4 (Version None)
Quarter: 2010Q2

REPORT INFORMATION
  Report Type: 
  Country: None (occurrence: None)
  Receive Date: 20100421
  Receipt Date: 20100412
  Transmission Date: 20101027
  Serious: Yes (Other)
  Sender: FDA-Public Use
  Company Number: JP-PFIZER INC-2010047404

PATIENT

DRUGS (1)
  1. AROMASIN [Suspect]
     Dosage: UNK
     Route: 048

REACTIONS (2)
  - ANTIDIURETIC HORMONE ABNORMALITY [None]
  - NEPHROGENIC DIABETES INSIPIDUS [None]
